FAERS Safety Report 8827356 (Version 1)
Quarter: 2012Q4

REPORT INFORMATION
  Report Type: 
  Country: US (occurrence: US)
  Receive Date: 20121005
  Receipt Date: 20121005
  Transmission Date: 20130627
  Serious: No
  Sender: FDA-Public Use
  Company Number: US-BRISTOL-MYERS SQUIBB COMPANY-16130379

PATIENT
  Age: 69 Year
  Sex: Male

DRUGS (2)
  1. AVALIDE [Suspect]
     Indication: HYPERTENSION
     Dosage: 1DF:300/12.5mg
1pill
  2. AVAPRO [Suspect]

REACTIONS (2)
  - Osteoarthritis [Unknown]
  - Drug ineffective [Unknown]
